FAERS Safety Report 23305207 (Version 1)
Quarter: 2023Q4

REPORT INFORMATION
  Report Type: Spontaneous
  Country: US (occurrence: US)
  Receive Date: 20231218
  Receipt Date: 20231218
  Transmission Date: 20240110
  Serious: No
  Sender: FDA-Public Use
  Company Number: US-GSK-US2023AMR173371

PATIENT
  Age: 66 Year
  Sex: Female
  Weight: 104.98 kg

DRUGS (3)
  1. MOMELOTINIB [Suspect]
     Active Substance: MOMELOTINIB
     Indication: Product used for unknown indication
     Dosage: UNK
  2. JAKAFI [Suspect]
     Active Substance: RUXOLITINIB
     Indication: Myeloproliferative neoplasm
     Dosage: 10 MG, BID
     Route: 048
     Dates: start: 20230815
  3. JAKAFI [Suspect]
     Active Substance: RUXOLITINIB
     Dosage: 20 MG, QD
     Route: 048
     Dates: start: 20230815

REACTIONS (3)
  - White blood cell disorder [Unknown]
  - Pruritus [Unknown]
  - Blood potassium increased [Unknown]

NARRATIVE: CASE EVENT DATE: 20230815
